FAERS Safety Report 24370607 (Version 1)
Quarter: 2024Q3

REPORT INFORMATION
  Report Type: Spontaneous
  Country: US (occurrence: US)
  Receive Date: 20240927
  Receipt Date: 20240927
  Transmission Date: 20241017
  Serious: No
  Sender: RECKITT BENCKISER
  Company Number: US-Indivior Limited-INDV-140512-2023

PATIENT
  Sex: Male

DRUGS (4)
  1. PERSERIS [Suspect]
     Active Substance: RISPERIDONE
     Indication: Schizophrenia
     Dosage: 120 MILLIGRAM, QMO
     Route: 023
     Dates: start: 20230731
  2. PERSERIS [Suspect]
     Active Substance: RISPERIDONE
  3. DIVALPROEX SODIUM [Concomitant]
     Active Substance: DIVALPROEX SODIUM
     Indication: Affective disorder
     Dosage: 500 MILLIGRAM, BID
     Route: 065
     Dates: start: 20230720
  4. NICOTINE [Concomitant]
     Active Substance: NICOTINE
     Indication: Nicotine dependence
     Dosage: 14 MILLIGRAM, QD (PATCH)
     Route: 065
     Dates: start: 20230721

REACTIONS (3)
  - Incorrect route of product administration [Recovered/Resolved]
  - Injection site cellulitis [Recovering/Resolving]
  - Drug effect less than expected [Unknown]

NARRATIVE: CASE EVENT DATE: 20230101
